FAERS Safety Report 25940179 (Version 1)
Quarter: 2025Q4

REPORT INFORMATION
  Report Type: Spontaneous
  Country: US (occurrence: None)
  Receive Date: 20251017
  Receipt Date: 20251017
  Transmission Date: 20260118
  Serious: No
  Sender: FDA-CTU
  Company Number: None

PATIENT

DRUGS (2)
  1. ALECENSA [Suspect]
     Active Substance: ALECTINIB HYDROCHLORIDE
  2. LORBRENA [Suspect]
     Active Substance: LORLATINIB

REACTIONS (3)
  - Cerebrovascular accident [None]
  - Therapy cessation [None]
  - Fatigue [None]
